FAERS Safety Report 12144324 (Version 1)
Quarter: 2016Q1

REPORT INFORMATION
  Report Type: Report from Study
  Country: JP (occurrence: JP)
  Receive Date: 20160304
  Receipt Date: 20160304
  Transmission Date: 20160526
  Serious: Yes (Death, Other)
  Sender: FDA-Public Use
  Company Number: JP-009507513-1601JPN010943

PATIENT
  Age: 75 Year
  Sex: Female
  Weight: 30 kg

DRUGS (7)
  1. MEROPEN [Concomitant]
     Active Substance: MEROPENEM
     Indication: SEPSIS
     Dosage: 0.5 G, BID
     Route: 041
     Dates: start: 20140410, end: 20140415
  2. KENKETU NONTHRON [Concomitant]
     Indication: DISSEMINATED INTRAVASCULAR COAGULATION
     Dosage: 2 DF, QD
     Route: 041
     Dates: start: 20140410, end: 20140415
  3. ZITHROMAC [Concomitant]
     Active Substance: AZITHROMYCIN DIHYDRATE
     Indication: SEPSIS
     Dosage: 2 G, QD
     Route: 048
     Dates: start: 20140414, end: 20140414
  4. GLOBULIN, IMMUNE [Concomitant]
     Active Substance: HUMAN IMMUNOGLOBULIN G
     Indication: SEPSIS
     Dosage: 5 G, QD
     Route: 041
     Dates: start: 20140410, end: 20140412
  5. HANDARAMIN [Concomitant]
     Indication: SEPSIS
     Dosage: 600 MG, BID
     Route: 041
     Dates: start: 20140410, end: 20140415
  6. RECOMODULIN [Concomitant]
     Active Substance: THROMBOMODULIN ALFA
     Indication: DISSEMINATED INTRAVASCULAR COAGULATION
     Dosage: 1 DF, QD
     Route: 041
     Dates: start: 20140410, end: 20140415
  7. CUBICIN [Suspect]
     Active Substance: DAPTOMYCIN
     Indication: SEPSIS
     Dosage: 4 MG/KG, QOD
     Route: 041
     Dates: start: 20140410, end: 20140415

REACTIONS (8)
  - Blood creatine phosphokinase increased [Fatal]
  - Drug ineffective [Unknown]
  - Sepsis [Fatal]
  - Aspartate aminotransferase increased [Fatal]
  - Alanine aminotransferase increased [Fatal]
  - Blood lactate dehydrogenase increased [Fatal]
  - Necrotising fasciitis [Fatal]
  - White blood cell count increased [Fatal]

NARRATIVE: CASE EVENT DATE: 20140415
